FAERS Safety Report 10905207 (Version 1)
Quarter: 2015Q1

REPORT INFORMATION
  Report Type: Spontaneous
  Country: FR (occurrence: FR)
  Receive Date: 20150311
  Receipt Date: 20150311
  Transmission Date: 20150721
  Serious: Yes (Other)
  Sender: FDA-Public Use
  Company Number: FR-ASTRAZENECA-2015SE20787

PATIENT
  Age: 24552 Day
  Sex: Male

DRUGS (3)
  1. BRILIQUE [Suspect]
     Active Substance: TICAGRELOR
     Indication: CORONARY ARTERIAL STENT INSERTION
     Route: 048
     Dates: start: 201409, end: 20141028
  2. CALCIPARINE [Interacting]
     Active Substance: HEPARIN CALCIUM
     Indication: THROMBOSIS PROPHYLAXIS
     Route: 058
     Dates: start: 20141025, end: 20141028
  3. KARDEGIC [Interacting]
     Active Substance: ASPIRIN LYSINE
     Indication: CORONARY ARTERIAL STENT INSERTION
     Route: 048
     Dates: start: 201409, end: 20141028

REACTIONS (3)
  - Drug interaction [Unknown]
  - Puncture site haemorrhage [Recovered/Resolved]
  - Metastases to bone [Unknown]

NARRATIVE: CASE EVENT DATE: 20141028
